FAERS Safety Report 9752616 (Version 1)
Quarter: 2013Q4

REPORT INFORMATION
  Report Type: Spontaneous
  Country: GB (occurrence: None)
  Receive Date: 20131211
  Receipt Date: 20131211
  Transmission Date: 20140711
  Serious: Yes (Hospitalization)
  Sender: FDA-Public Use
  Company Number: AUR-APL-2013-10270

PATIENT
  Age: 74 Year
  Sex: Female

DRUGS (3)
  1. LISINOPRIL [Suspect]
     Indication: PRODUCT USED FOR UNKNOWN INDICATION
  2. VERAPAMIL [Suspect]
     Indication: PRODUCT USED FOR UNKNOWN INDICATION
  3. NICORANDIL [Suspect]
     Indication: PRODUCT USED FOR UNKNOWN INDICATION

REACTIONS (10)
  - Overdose [None]
  - Hypotension [None]
  - Renal failure acute [None]
  - Metabolic acidosis [None]
  - Bradycardia [None]
  - Electrocardiogram ST segment depression [None]
  - Respiratory failure [None]
  - Agitation [None]
  - Beta haemolytic streptococcal infection [None]
  - Gas gangrene [None]
